FAERS Safety Report 19922461 (Version 5)
Quarter: 2022Q4

REPORT INFORMATION
  Report Type: Report from Study
  Country: BR (occurrence: BR)
  Receive Date: 20211005
  Receipt Date: 20221013
  Transmission Date: 20230113
  Serious: Yes (Other)
  Sender: FDA-Public Use
  Company Number: NVSC2021BR031377

PATIENT
  Age: 66 Year
  Sex: Male

DRUGS (4)
  1. COSENTYX [Suspect]
     Active Substance: SECUKINUMAB
     Indication: Psoriasis
     Dosage: 6TH DAY OF EVERY MONTH
     Route: 065
  2. COSENTYX [Suspect]
     Active Substance: SECUKINUMAB
     Dosage: 300 MG
     Route: 065
     Dates: start: 201904
  3. COSENTYX [Suspect]
     Active Substance: SECUKINUMAB
     Dosage: UNK
     Route: 065
     Dates: start: 20210916
  4. COSENTYX [Suspect]
     Active Substance: SECUKINUMAB
     Dosage: UNK
     Route: 065
     Dates: start: 20220516

REACTIONS (14)
  - Choking [Unknown]
  - Coronary artery occlusion [Unknown]
  - Rash macular [Not Recovered/Not Resolved]
  - Skin discolouration [Not Recovered/Not Resolved]
  - Anxiety [Unknown]
  - Nervousness [Unknown]
  - Pruritus [Unknown]
  - Scab [Unknown]
  - Asthenia [Unknown]
  - Feeling abnormal [Unknown]
  - Superficial vein thrombosis [Unknown]
  - Skin plaque [Unknown]
  - Influenza [Unknown]
  - Dysphonia [Unknown]

NARRATIVE: CASE EVENT DATE: 20200501
